FAERS Safety Report 23105982 (Version 1)
Quarter: 2023Q4

REPORT INFORMATION
  Report Type: Spontaneous
  Country: ES (occurrence: ES)
  Receive Date: 20231025
  Receipt Date: 20231025
  Transmission Date: 20240109
  Serious: Yes (Hospitalization, Other)
  Sender: FDA-Public Use
  Company Number: ES-SA-SAC20231013000711

PATIENT
  Age: 17 Year
  Sex: Male

DRUGS (3)
  1. DUPIXENT [Suspect]
     Active Substance: DUPILUMAB
     Indication: Dermatitis
     Dosage: 200 MG, QOW
     Route: 065
     Dates: end: 20231011
  2. INFLIXIMAB [Concomitant]
     Active Substance: INFLIXIMAB
     Dosage: QM
  3. PREDNISONE [Concomitant]
     Active Substance: PREDNISONE
     Route: 048

REACTIONS (11)
  - Periorbital cellulitis [Recovered/Resolved]
  - Cytomegalovirus infection [Recovered/Resolved]
  - Clostridium difficile colitis [Recovered/Resolved]
  - Candida infection [Recovered/Resolved]
  - Condition aggravated [Recovered/Resolved]
  - Arthritis [Unknown]
  - Superior vena cava syndrome [Unknown]
  - Jugular vein thrombosis [Unknown]
  - Oedema [Unknown]
  - Product prescribing issue [Unknown]
  - Product use in unapproved indication [Unknown]
